FAERS Safety Report 17054949 (Version 2)
Quarter: 2020Q4

REPORT INFORMATION
  Report Type: Spontaneous
  Country: US (occurrence: US)
  Receive Date: 20191120
  Receipt Date: 20201015
  Transmission Date: 20210113
  Serious: Yes (Hospitalization)
  Sender: FDA-Public Use
  Company Number: NVSC2019US040841

PATIENT
  Age: 60 Year
  Sex: Female

DRUGS (1)
  1. DABRAFENIB,TRAMETINIB [Suspect]
     Active Substance: DABRAFENIB\TRAMETINIB
     Indication: MALIGNANT MELANOMA
     Route: 065

REACTIONS (8)
  - Vomiting [Unknown]
  - Hypovolaemic shock [Unknown]
  - Diarrhoea [Unknown]
  - Acute kidney injury [Not Recovered/Not Resolved]
  - Nausea [Unknown]
  - Blood creatinine increased [Recovering/Resolving]
  - Hypotension [Unknown]
  - Dehydration [Unknown]
